FAERS Safety Report 7609509-0 (Version None)
Quarter: 2011Q3

REPORT INFORMATION
  Report Type: 
  Country: None (occurrence: None)
  Receive Date: 20110714
  Receipt Date: 20110711
  Transmission Date: 20111222
  Serious: Yes (Other)
  Sender: FDA-Public Use
  Company Number: US-TEVA-290265USA

PATIENT
  Age: 36 Year
  Sex: Male

DRUGS (2)
  1. BROMOCRIPTINE MESYLATE [Suspect]
     Dosage: 22.5 MILLIGRAM;
  2. PERGOLIDE [Suspect]

REACTIONS (2)
  - IMPULSE-CONTROL DISORDER [None]
  - GAMBLING [None]
